FAERS Safety Report 9185021 (Version 2)
Quarter: 2013Q2

REPORT INFORMATION
  Report Type: Report from Study
  Country: CA (occurrence: CA)
  Receive Date: 20130325
  Receipt Date: 20130531
  Transmission Date: 20140414
  Serious: Yes (Other)
  Sender: FDA-Public Use
  Company Number: CA-ROCHE-1204309

PATIENT
  Age: 61 Year
  Sex: Female
  Weight: 47.6 kg

DRUGS (9)
  1. HERCEPTIN [Suspect]
     Indication: BREAST CANCER
     Route: 042
     Dates: start: 2006, end: 20130305
  2. HERCEPTIN [Suspect]
     Route: 042
     Dates: start: 201205, end: 20130305
  3. XELODA [Suspect]
     Indication: PRODUCT USED FOR UNKNOWN INDICATION
     Route: 065
  4. TAXOL [Suspect]
     Indication: BREAST CANCER
     Route: 042
     Dates: start: 201205, end: 20130305
  5. LAPATINIB [Suspect]
     Indication: PRODUCT USED FOR UNKNOWN INDICATION
     Route: 065
  6. NORVASC [Concomitant]
  7. LYRICA [Concomitant]
  8. STATEX (CANADA) [Concomitant]
  9. NEXIUM [Concomitant]

REACTIONS (4)
  - Drug ineffective [Unknown]
  - Neoplasm [Unknown]
  - Metastases to liver [Unknown]
  - Metastases to lung [Unknown]
